FAERS Safety Report 9125710 (Version 1)
Quarter: 2013Q1

REPORT INFORMATION
  Report Type: Spontaneous
  Country: CO (occurrence: CO)
  Receive Date: 20130228
  Receipt Date: 20130228
  Transmission Date: 20140127
  Serious: Yes (Other)
  Sender: FDA-Public Use
  Company Number: CO-AMGEN-COLSP2013013671

PATIENT
  Age: 10 Year
  Sex: Male

DRUGS (1)
  1. ENBREL [Suspect]
     Indication: JUVENILE IDIOPATHIC ARTHRITIS
     Dosage: 25 MG, WEEKLY
     Route: 058
     Dates: start: 2011

REACTIONS (5)
  - Overdose [Recovered/Resolved]
  - Poisoning [Recovered/Resolved]
  - Rash generalised [Recovered/Resolved with Sequelae]
  - Blister [Recovered/Resolved with Sequelae]
  - Lip swelling [Recovered/Resolved]
